FAERS Safety Report 4895988-9 (Version None)
Quarter: 2006Q1

REPORT INFORMATION
  Report Type: 
  Country: None (occurrence: None)
  Receive Date: 20060125
  Receipt Date: 20051027
  Transmission Date: 20060701
  Serious: Yes (Other)
  Sender: FDA-Public Use
  Company Number: 2005147459

PATIENT
  Age: 20 Year
  Sex: Female
  Weight: 81.6475 kg

DRUGS (1)
  1. ZANTAC [Suspect]
     Indication: STOMACH DISCOMFORT
     Dosage: 1 TABLET DAILY, ORAL
     Route: 048
     Dates: start: 20051001

REACTIONS (4)
  - ASTHENIA [None]
  - DIZZINESS [None]
  - LOSS OF CONSCIOUSNESS [None]
  - ORAL INTAKE REDUCED [None]
